FAERS Safety Report 25116597 (Version 1)
Quarter: 2025Q1

REPORT INFORMATION
  Report Type: Spontaneous
  Country: US (occurrence: US)
  Receive Date: 20250325
  Receipt Date: 20250325
  Transmission Date: 20250409
  Serious: Yes (Other)
  Sender: ALVOGEN
  Company Number: US-ALVOGEN-2025096503

PATIENT
  Sex: Female

DRUGS (1)
  1. TERIPARATIDE [Suspect]
     Active Substance: TERIPARATIDE
     Indication: Osteoporosis
     Dosage: STRENGTH: 250MCG/ML
     Route: 058
     Dates: start: 202502

REACTIONS (7)
  - Sjogren^s syndrome [Unknown]
  - Rhinorrhoea [Unknown]
  - Fatigue [Unknown]
  - Nausea [Recovering/Resolving]
  - Dizziness [Unknown]
  - Arthralgia [Unknown]
  - Product storage error [Unknown]

NARRATIVE: CASE EVENT DATE: 20250101
